FAERS Safety Report 8289278-4 (Version None)
Quarter: 2012Q2

REPORT INFORMATION
  Report Type: 
  Country: None (occurrence: None)
  Receive Date: 20120417
  Receipt Date: 20120412
  Transmission Date: 20120825
  Serious: Yes (Other)
  Sender: FDA-Public Use
  Company Number: PHHY2011US114670

PATIENT
  Age: 42 Year
  Sex: Female

DRUGS (2)
  1. NORTRIPTYLINE HCL [Interacting]
     Indication: NEURALGIA
  2. TRAMADOL HCL [Suspect]
     Indication: MYOFASCIAL PAIN SYNDROME

REACTIONS (6)
  - RESTLESSNESS [None]
  - HYPERREFLEXIA [None]
  - MENTAL STATUS CHANGES [None]
  - SEROTONIN SYNDROME [None]
  - DRUG INTERACTION [None]
  - HYPERTENSION [None]
